FAERS Safety Report 9552123 (Version 1)
Quarter: 2013Q3

REPORT INFORMATION
  Report Type: Spontaneous
  Country: US (occurrence: None)
  Receive Date: 20130923
  Receipt Date: 20130923
  Transmission Date: 20140515
  Serious: Yes (Hospitalization)
  Sender: FDA-Public Use
  Company Number: None

PATIENT
  Age: 35 Year
  Sex: Female
  Weight: 55.9 kg

DRUGS (1)
  1. CISPLATIN [Suspect]

REACTIONS (9)
  - Urinary tract infection [None]
  - Sepsis [None]
  - Hypotension [None]
  - Tachycardia [None]
  - Hypomagnesaemia [None]
  - Hypokalaemia [None]
  - Neutropenia [None]
  - Anaemia [None]
  - Electrolyte imbalance [None]
